FAERS Safety Report 10863928 (Version 5)
Quarter: 2015Q2

REPORT INFORMATION
  Report Type: Report from Study
  Country: FR (occurrence: FR)
  Receive Date: 20150223
  Receipt Date: 20150522
  Transmission Date: 20150821
  Serious: Yes (Death, Other)
  Sender: FDA-Public Use
  Company Number: FR-GLAXOSMITHKLINE-FR2015GSK021488

PATIENT
  Age: 38 Year
  Sex: Female
  Weight: 92 kg

DRUGS (11)
  1. TIENAM [Concomitant]
     Active Substance: CILASTATIN SODIUM\IMIPENEM
  2. AMANTADINE [Concomitant]
     Active Substance: AMANTADINE
     Indication: INFLUENZA
     Dosage: 100 MG, BID
     Dates: start: 2015
  3. ZYVOXID [Concomitant]
     Active Substance: LINEZOLID
  4. OZALTAMIVIR [Concomitant]
     Indication: INFLUENZA
     Dosage: 150 MG, BID
     Route: 048
     Dates: start: 201501, end: 201502
  5. NITROUS OXIDE. [Concomitant]
     Active Substance: NITROUS OXIDE
     Dosage: UNK
     Dates: start: 2015
  6. VFEND [Concomitant]
     Active Substance: VORICONAZOLE
  7. ZANAMIVIR [Suspect]
     Active Substance: ZANAMIVIR
     Dosage: 600 MG, BID
     Route: 042
     Dates: start: 20150212, end: 20150213
  8. COLIMYCINE [Concomitant]
     Active Substance: COLISTIMETHATE SODIUM
  9. TAMIFLU [Concomitant]
     Active Substance: OSELTAMIVIR PHOSPHATE
  10. VIRAZOL [Concomitant]
     Indication: INFLUENZA
  11. UNSPECIFIED CURARE [Concomitant]
     Dosage: UNK
     Dates: start: 2015

REACTIONS (2)
  - Multi-organ failure [Fatal]
  - Acute respiratory distress syndrome [Fatal]

NARRATIVE: CASE EVENT DATE: 201502
